FAERS Safety Report 19581188 (Version 4)
Quarter: 2023Q2

REPORT INFORMATION
  Report Type: Report from Study
  Country: ES (occurrence: ES)
  Receive Date: 20210719
  Receipt Date: 20230606
  Transmission Date: 20230722
  Serious: Yes (Hospitalization, Other)
  Sender: FDA-Public Use
  Company Number: ES-SHIRE-ES202022362

PATIENT
  Age: 52 Year
  Sex: Male

DRUGS (16)
  1. TEDUGLUTIDE [Suspect]
     Active Substance: TEDUGLUTIDE
     Indication: Short-bowel syndrome
     Dosage: 3.6 MILLIGRAM, QD
     Route: 042
     Dates: start: 20190130, end: 20200620
  2. TEDUGLUTIDE [Suspect]
     Active Substance: TEDUGLUTIDE
     Indication: Short-bowel syndrome
     Dosage: 3.6 MILLIGRAM, QD
     Route: 042
     Dates: start: 20190130, end: 20200620
  3. TEDUGLUTIDE [Suspect]
     Active Substance: TEDUGLUTIDE
     Indication: Short-bowel syndrome
     Dosage: 3.6 MILLIGRAM, QD
     Route: 042
     Dates: start: 20190130, end: 20200620
  4. TEDUGLUTIDE [Suspect]
     Active Substance: TEDUGLUTIDE
     Indication: Short-bowel syndrome
     Dosage: 3.6 MILLIGRAM, QD
     Route: 042
     Dates: start: 20190130, end: 20200620
  5. TEDUGLUTIDE [Suspect]
     Active Substance: TEDUGLUTIDE
     Dosage: 3.6 MILLIGRAM, QD
     Route: 042
     Dates: start: 20200627, end: 20210127
  6. TEDUGLUTIDE [Suspect]
     Active Substance: TEDUGLUTIDE
     Dosage: 3.6 MILLIGRAM, QD
     Route: 042
     Dates: start: 20200627, end: 20210127
  7. TEDUGLUTIDE [Suspect]
     Active Substance: TEDUGLUTIDE
     Dosage: 3.6 MILLIGRAM, QD
     Route: 042
     Dates: start: 20200627, end: 20210127
  8. TEDUGLUTIDE [Suspect]
     Active Substance: TEDUGLUTIDE
     Dosage: 3.6 MILLIGRAM, QD
     Route: 042
     Dates: start: 20200627, end: 20210127
  9. CYANOCOBALAMIN [Concomitant]
     Active Substance: CYANOCOBALAMIN
     Indication: Vitamin B12 deficiency
     Dosage: 1 AMPS, ONCE MONTHLY
     Route: 030
     Dates: start: 20190919
  10. ASPIRIN [Concomitant]
     Active Substance: ASPIRIN
     Indication: Trombidiasis
     Dosage: 100 MILLIGRAM, QD
     Route: 048
     Dates: start: 20190226
  11. CHOLECALCIFEROL [Concomitant]
     Active Substance: CHOLECALCIFEROL
     Indication: Vitamin D deficiency
     Dosage: 25000 INTERNATIONAL UNIT, 1/WEEK
     Route: 048
     Dates: start: 20201111
  12. CLAVULANIC ACID [Concomitant]
     Active Substance: CLAVULANIC ACID
     Indication: Cholangitis acute
     Dosage: 875 MILLIGRAM, TID
     Route: 048
     Dates: start: 20200625
  13. Magnogene [Concomitant]
     Indication: Magnesium deficiency
     Dosage: 53 MILLIGRAM, TID
     Route: 048
     Dates: start: 20230328
  14. DILTIAZEM [Concomitant]
     Active Substance: DILTIAZEM
     Indication: Proctalgia
     Dosage: 1 DOSAGE FORM, TID
     Route: 054
     Dates: start: 20220705
  15. Anso [Concomitant]
     Indication: Haemorrhoids
     Dosage: 1 DOSAGE FORM, TID
     Route: 054
     Dates: start: 20220728
  16. METRONIDAZOLE [Concomitant]
     Active Substance: METRONIDAZOLE
     Indication: Gastrointestinal bacterial overgrowth
     Dosage: 500 MILLIGRAM, TID
     Route: 048
     Dates: start: 20220901

REACTIONS (3)
  - Cholangitis acute [Recovered/Resolved]
  - COVID-19 [Recovered/Resolved]
  - Large intestine polyp [Recovered/Resolved]

NARRATIVE: CASE EVENT DATE: 20200620
